FAERS Safety Report 9878225 (Version 1)
Quarter: 2014Q1

REPORT INFORMATION
  Report Type: Spontaneous
  Country: GB (occurrence: GB)
  Receive Date: 20140206
  Receipt Date: 20140206
  Transmission Date: 20141002
  Serious: Yes (Other)
  Sender: FDA-Public Use
  Company Number: US-ASTRAZENECA-2014SE08099

PATIENT
  Age: 81 Year
  Sex: Male
  Weight: 70 kg

DRUGS (2)
  1. AMIAS [Suspect]
     Indication: HYPERTENSION
     Route: 048
     Dates: start: 2012, end: 201401
  2. AMLODIPINE [Suspect]
     Indication: HYPERTENSION
     Route: 065
     Dates: start: 2011, end: 201401

REACTIONS (5)
  - Throat irritation [Recovered/Resolved]
  - Choking [Recovered/Resolved]
  - Somnolence [Recovered/Resolved]
  - Urinary tract disorder [Recovered/Resolved]
  - Lip swelling [Recovered/Resolved]
